FAERS Safety Report 5041387-9 (Version None)
Quarter: 2006Q2

REPORT INFORMATION
  Report Type: 
  Country: None (occurrence: None)
  Receive Date: 20060626
  Receipt Date: 20060615
  Transmission Date: 20061013
  Serious: Yes (Other)
  Sender: FDA-Public Use
  Company Number: 221563

PATIENT
  Age: 51 Year
  Sex: Male
  Weight: 72 kg

DRUGS (2)
  1. AVASTIN [Suspect]
     Indication: NON-SMALL CELL LUNG CANCER
     Dosage: 1180 MG, Q3W, INTRAVENOUS
     Route: 042
  2. ALIMTA [Concomitant]

REACTIONS (2)
  - BACTERIA WOUND IDENTIFIED [None]
  - OSTEONECROSIS [None]
